FAERS Safety Report 19372540 (Version 1)
Quarter: 2021Q2

REPORT INFORMATION
  Report Type: Other
  Country: CA (occurrence: CA)
  Receive Date: 20210604
  Receipt Date: 20210604
  Transmission Date: 20210717
  Serious: Yes (Other)
  Sender: FDA-Public Use
  Company Number: CA-ROCHE-1462701

PATIENT
  Age: 68 Year
  Sex: Female
  Weight: 86.2 kg

DRUGS (19)
  1. ACETAMINOPHEN. [Concomitant]
     Active Substance: ACETAMINOPHEN
     Indication: PREMEDICATION
     Route: 048
     Dates: start: 20110111
  2. VITAMIN D3 [Concomitant]
     Active Substance: CHOLECALCIFEROL
  3. CALCIUM [Concomitant]
     Active Substance: CALCIUM
  4. DIPHENHYDRAMINE HCL [Concomitant]
     Active Substance: DIPHENHYDRAMINE HYDROCHLORIDE
     Indication: PREMEDICATION
     Route: 048
     Dates: start: 20110111
  5. METHOTREXATE. [Concomitant]
     Active Substance: METHOTREXATE
  6. PANTOPRAZOLE [Concomitant]
     Active Substance: PANTOPRAZOLE
  7. FENOFIBRATE. [Concomitant]
     Active Substance: FENOFIBRATE
  8. LEVITRA [Concomitant]
     Active Substance: VARDENAFIL HYDROCHLORIDE
  9. PRIMIDONE. [Concomitant]
     Active Substance: PRIMIDONE
  10. EZETROL [Concomitant]
     Active Substance: EZETIMIBE
  11. HYDROCODONE [Concomitant]
     Active Substance: HYDROCODONE
     Dosage: AT BEDTIME
  12. METAMUCIL [Concomitant]
     Active Substance: PLANTAGO SEED
     Dosage: 1 TEASPOON
  13. RITUXAN [Suspect]
     Active Substance: RITUXIMAB
     Indication: RHEUMATOID ARTHRITIS
     Dosage: FREQUENCY: DAY 1 AND 15
     Route: 041
     Dates: start: 20110111
  14. METHYLPREDNISOLONE. [Suspect]
     Active Substance: METHYLPREDNISOLONE
     Indication: PREMEDICATION
     Route: 042
     Dates: start: 20110111
  15. ESBRIET [Suspect]
     Active Substance: PIRFENIDONE
     Indication: IDIOPATHIC PULMONARY FIBROSIS
     Route: 048
     Dates: start: 20201219
  16. ESBRIET [Suspect]
     Active Substance: PIRFENIDONE
     Route: 048
  17. FOLIC ACID. [Concomitant]
     Active Substance: FOLIC ACID
  18. DOMPERIDONE [Concomitant]
     Active Substance: DOMPERIDONE
  19. DILANTIN [Concomitant]
     Active Substance: PHENYTOIN

REACTIONS (9)
  - Bradycardia [Unknown]
  - Injection site extravasation [Unknown]
  - Weight decreased [Unknown]
  - Illness [Unknown]
  - Blood pressure increased [Unknown]
  - Hypotension [Unknown]
  - Epilepsy [Unknown]
  - Hypotension [Unknown]
  - Pulmonary function test abnormal [Unknown]

NARRATIVE: CASE EVENT DATE: 2012
